FAERS Safety Report 5607093-4 (Version None)
Quarter: 2008Q1

REPORT INFORMATION
  Report Type: 
  Country: None (occurrence: None)
  Receive Date: 20080129
  Receipt Date: 20080117
  Transmission Date: 20080703
  Serious: Yes (Other)
  Sender: FDA-Public Use
  Company Number: US-PFIZER INC-2008005952

PATIENT
  Sex: Female
  Weight: 79.545 kg

DRUGS (4)
  1. LYRICA [Suspect]
     Indication: FIBROMYALGIA
  2. VYTORIN [Concomitant]
  3. HYZAAR [Concomitant]
  4. NORVASC [Concomitant]

REACTIONS (5)
  - DRUG INEFFECTIVE [None]
  - EYE SWELLING [None]
  - MENTAL IMPAIRMENT [None]
  - PARAESTHESIA [None]
  - SWELLING FACE [None]
